FAERS Safety Report 21140453 (Version 1)
Quarter: 2022Q3

REPORT INFORMATION
  Report Type: Report from Study
  Country: US (occurrence: US)
  Receive Date: 20220728
  Receipt Date: 20220728
  Transmission Date: 20221027
  Serious: No
  Sender: FDA-Public Use
  Company Number: US-Ipsen Biopharmaceuticals, Inc.-2022-21228

PATIENT
  Sex: Male

DRUGS (2)
  1. DYSPORT [Suspect]
     Active Substance: ABOBOTULINUMTOXINA
     Indication: Myofascial pain syndrome
     Dosage: DOSE NOT REPORTED
     Route: 065
  2. DYSPORT [Suspect]
     Active Substance: ABOBOTULINUMTOXINA
     Indication: Off label use

REACTIONS (3)
  - Neck pain [Unknown]
  - Drug ineffective for unapproved indication [Unknown]
  - Off label use [Unknown]
